FAERS Safety Report 8855392 (Version 1)
Quarter: 2012Q4

REPORT INFORMATION
  Report Type: 
  Country: US (occurrence: US)
  Receive Date: 20121023
  Receipt Date: 20121023
  Transmission Date: 20130627
  Serious: Yes (Hospitalization)
  Sender: FDA-Public Use
  Company Number: US-AMGEN-USASP2012054816

PATIENT
  Sex: Male

DRUGS (6)
  1. ENBREL [Suspect]
     Indication: PRODUCT USED FOR UNKNOWN INDICATION
     Dosage: 25 mg, q2wk
     Route: 058
  2. BENAZEPRIL [Concomitant]
     Dosage: 10 mg, UNK
  3. SIMVASTATIN [Concomitant]
     Dosage: 20 mg, UNK
  4. METOPROLOL [Concomitant]
     Dosage: 50 mg, UNK
  5. MULTIVITAMINS [Concomitant]
     Dosage: UNK
  6. PLAVIX [Concomitant]
     Dosage: 300 mg, UNK

REACTIONS (1)
  - Cellulitis [Unknown]
